FAERS Safety Report 4864945-0 (Version None)
Quarter: 2005Q4

REPORT INFORMATION
  Report Type: 
  Country: None (occurrence: None)
  Receive Date: 20051201
  Receipt Date: 20050718
  Transmission Date: 20060501
  Serious: No
  Sender: FDA-Public Use
  Company Number: 2005PV000445

PATIENT
  Age: 58 Year
  Sex: Female
  Weight: 71.6683 kg

DRUGS (4)
  1. BYETTA [Suspect]
     Indication: DIABETES MELLITUS NON-INSULIN-DEPENDENT
     Dosage: 5 UG;BID;SC
     Route: 058
     Dates: start: 20050712
  2. METFORMIN HCL [Concomitant]
  3. AVANDIA [Concomitant]
  4. HUMULIN N [Concomitant]

REACTIONS (1)
  - BLOOD GLUCOSE INCREASED [None]
